FAERS Safety Report 13973897 (Version 1)
Quarter: 2017Q3

REPORT INFORMATION
  Report Type: Spontaneous
  Country: JP (occurrence: JP)
  Receive Date: 20170914
  Receipt Date: 20170914
  Transmission Date: 20171128
  Serious: Yes (Death, Other)
  Sender: FDA-Public Use
  Company Number: JP-CELGENEUS-JPN-20170901789

PATIENT

DRUGS (2)
  1. CARBOPLATIN. [Suspect]
     Active Substance: CARBOPLATIN
     Indication: NON-SMALL CELL LUNG CANCER
     Route: 065
  2. ABRAXANE [Suspect]
     Active Substance: PACLITAXEL
     Indication: NON-SMALL CELL LUNG CANCER
     Route: 065

REACTIONS (14)
  - Thrombocytopenia [Unknown]
  - Vomiting [Unknown]
  - Constipation [Unknown]
  - Neurotoxicity [Unknown]
  - Haemorrhage [Unknown]
  - Fatigue [Unknown]
  - Anaemia [Unknown]
  - Rash [Unknown]
  - Decreased appetite [Unknown]
  - Febrile neutropenia [Unknown]
  - Lung infection [Unknown]
  - Neutropenia [Unknown]
  - Lung neoplasm malignant [Fatal]
  - Leukopenia [Unknown]
